FAERS Safety Report 6186154-8 (Version None)
Quarter: 2009Q2

REPORT INFORMATION
  Report Type: 
  Country: None (occurrence: None)
  Receive Date: 20090511
  Receipt Date: 20081126
  Transmission Date: 20091009
  Serious: Yes (Other)
  Sender: FDA-Public Use
  Company Number: US-BAXTER-2008BH013175

PATIENT
  Age: 44 Year
  Sex: Male

DRUGS (2)
  1. HEPARIN SODIUM 1,000 UNITS AND SODIUM CHLORIDE 0.9% [Suspect]
     Indication: CEREBRAL VENOUS THROMBOSIS
     Route: 042
  2. UROKINASE [Suspect]
     Indication: CEREBRAL VENOUS THROMBOSIS
     Route: 042

REACTIONS (2)
  - HEPARIN-INDUCED THROMBOCYTOPENIA [None]
  - PULMONARY EMBOLISM [None]
